FAERS Safety Report 9720785 (Version 2)
Quarter: 2013Q4

REPORT INFORMATION
  Report Type: Report from Study
  Country: US (occurrence: US)
  Receive Date: 20131129
  Receipt Date: 20131129
  Transmission Date: 20140711
  Serious: Yes (Other)
  Sender: FDA-Public Use
  Company Number: US-JNJFOC-20131115251

PATIENT
  Age: 26 Year
  Sex: Female

DRUGS (7)
  1. REMICADE [Suspect]
     Indication: COLITIS ULCERATIVE
     Route: 042
     Dates: start: 20131115
  2. REMICADE [Suspect]
     Indication: COLITIS ULCERATIVE
     Route: 042
     Dates: start: 2013
  3. REMICADE [Suspect]
     Indication: COLITIS ULCERATIVE
     Route: 042
     Dates: start: 2010, end: 2013
  4. LIALDA [Suspect]
     Indication: PRODUCT USED FOR UNKNOWN INDICATION
     Route: 065
  5. PROBIOTIC [Concomitant]
     Dosage: DOSE: 50 BILLION ONCE DAILY
     Route: 048
  6. VITAMIN D [Concomitant]
     Route: 048
     Dates: start: 2010
  7. CALCIUM AND MAGNESIUM [Concomitant]
     Route: 048

REACTIONS (7)
  - Haemorrhoids [Not Recovered/Not Resolved]
  - Gallbladder disorder [Unknown]
  - Pancreatic disorder [Unknown]
  - Exposure during pregnancy [Recovered/Resolved]
  - Colitis ulcerative [Unknown]
  - Abnormal loss of weight [Not Recovered/Not Resolved]
  - Rash macular [Recovered/Resolved]
